FAERS Safety Report 9644983 (Version 1)
Quarter: 2013Q4

REPORT INFORMATION
  Report Type: Spontaneous
  Country: US (occurrence: US)
  Receive Date: 20131025
  Receipt Date: 20131025
  Transmission Date: 20140711
  Serious: No
  Sender: FDA-Public Use
  Company Number: US-PFIZER INC-2013302962

PATIENT
  Age: 57 Year
  Sex: Male
  Weight: 74.83 kg

DRUGS (5)
  1. EFFEXOR XR [Suspect]
     Indication: DEPRESSION
     Dosage: 150 MG, DAILY
     Dates: start: 2011, end: 20131020
  2. EFFEXOR XR [Suspect]
     Indication: PANIC ATTACK
  3. EFFEXOR XR [Suspect]
     Indication: ANXIETY
  4. ABILIFY [Concomitant]
     Indication: PANIC ATTACK
     Dosage: UNK
  5. ABILIFY [Concomitant]
     Indication: ANXIETY

REACTIONS (6)
  - Back disorder [Unknown]
  - Intervertebral disc disorder [Unknown]
  - Dizziness [Not Recovered/Not Resolved]
  - Gait disturbance [Not Recovered/Not Resolved]
  - Dysstasia [Not Recovered/Not Resolved]
  - Paraesthesia [Not Recovered/Not Resolved]
